FAERS Safety Report 5571566-3 (Version None)
Quarter: 2007Q4

REPORT INFORMATION
  Report Type: 
  Country: None (occurrence: None)
  Receive Date: 20071221
  Receipt Date: 20071214
  Transmission Date: 20080405
  Serious: Yes (Other)
  Sender: FDA-Public Use
  Company Number: BE-ELI_LILLY_AND_COMPANY-BE200705003763

PATIENT
  Sex: Male
  Weight: 55 kg

DRUGS (2)
  1. STRATTERA [Suspect]
     Indication: ATTENTION DEFICIT/HYPERACTIVITY DISORDER
     Dosage: 70 MG, DAILY (1/D)
     Route: 048
     Dates: start: 20070201
  2. ALCOHOL [Interacting]
     Dosage: UNK, UNKNOWN
     Route: 048
     Dates: start: 20070101

REACTIONS (2)
  - COMA [None]
  - DRUG INTERACTION [None]
